FAERS Safety Report 4864985-1 (Version None)
Quarter: 2005Q4

REPORT INFORMATION
  Report Type: 
  Country: None (occurrence: None)
  Receive Date: 20051223
  Receipt Date: 20051215
  Transmission Date: 20060501
  Serious: Yes (Hospitalization)
  Sender: FDA-Public Use
  Company Number: PHBS2005NZ18523

PATIENT
  Age: 46 Year
  Sex: Male

DRUGS (4)
  1. CLOZARIL [Suspect]
     Dosage: 300 MG/D
     Dates: start: 20050817, end: 20051024
  2. CLOZARIL [Suspect]
     Dosage: 75 MG/D
     Dates: start: 20051027
  3. CLONAZEPAM [Concomitant]
     Dosage: 4.5 MG/D
  4. TETRABENAZINE [Concomitant]
     Indication: TARDIVE DYSKINESIA
     Dosage: 12.5 MG, TID
     Dates: end: 20051027

REACTIONS (6)
  - BLOOD CREATINE PHOSPHOKINASE INCREASED [None]
  - HYPONATRAEMIA [None]
  - LOWER RESPIRATORY TRACT INFECTION [None]
  - NEUTROPHIL COUNT INCREASED [None]
  - POLYDIPSIA [None]
  - WHITE BLOOD CELL COUNT INCREASED [None]
